FAERS Safety Report 11137311 (Version 1)
Quarter: 2015Q2

REPORT INFORMATION
  Report Type: Spontaneous
  Country: US (occurrence: US)
  Receive Date: 20150526
  Receipt Date: 20150526
  Transmission Date: 20150821
  Serious: No
  Sender: FDA-Public Use
  Company Number: US-MALLINCKRODT-T201501383

PATIENT
  Age: 34 Year
  Sex: Female

DRUGS (2)
  1. H.P. ACTHAR [Suspect]
     Active Substance: CORTICOTROPIN
     Dosage: 80 UNITS, TWICE WKLY
     Route: 058
     Dates: start: 20140812, end: 201502
  2. H.P. ACTHAR [Suspect]
     Active Substance: CORTICOTROPIN
     Indication: PROTEINURIA
     Dosage: 80 UNITS, ONCE WKLY
     Route: 058
     Dates: start: 201502

REACTIONS (5)
  - Headache [Unknown]
  - Urine abnormality [Unknown]
  - Swelling face [Unknown]
  - Eye swelling [Unknown]
  - Fatigue [Unknown]

NARRATIVE: CASE EVENT DATE: 201502
